FAERS Safety Report 15627896 (Version 1)
Quarter: 2018Q4

REPORT INFORMATION
  Report Type: Spontaneous
  Country: TR (occurrence: TR)
  Receive Date: 20181116
  Receipt Date: 20181116
  Transmission Date: 20190205
  Serious: Yes (Other)
  Sender: FDA-Public Use
  Company Number: TR-BAUSCH-BL-2018-031302

PATIENT
  Age: 12 Year
  Sex: Female

DRUGS (2)
  1. PREDNISOLONE. [Suspect]
     Active Substance: PREDNISOLONE
     Indication: RHEUMATIC FEVER
  2. PREDNISOLONE. [Suspect]
     Active Substance: PREDNISOLONE
     Indication: CARDITIS
     Dosage: FOUR DIVIDED DOSES PER DAY
     Route: 048

REACTIONS (1)
  - Bradycardia [Recovered/Resolved]
